FAERS Safety Report 8888197 (Version 4)
Quarter: 2013Q3

REPORT INFORMATION
  Report Type: Report from Study
  Country: US (occurrence: US)
  Receive Date: 20121106
  Receipt Date: 20130909
  Transmission Date: 20140515
  Serious: Yes (Hospitalization)
  Sender: FDA-Public Use
  Company Number: US-ACTELION-A-US2012-73455

PATIENT
  Age: 89 Year
  Sex: Female
  Weight: 76.19 kg

DRUGS (10)
  1. VENTAVIS [Suspect]
     Indication: PULMONARY ARTERIAL HYPERTENSION
     Dosage: UNK MCG, UNK
     Route: 055
  2. VENTAVIS [Suspect]
     Dosage: UNK
     Route: 055
  3. TRACLEER [Suspect]
     Indication: PULMONARY ARTERIAL HYPERTENSION
     Dosage: 125 MG, BID
     Route: 048
  4. TRACLEER [Suspect]
     Dosage: UNK UNK, BID
     Route: 048
  5. COUMADIN [Suspect]
  6. ASPIRIN [Suspect]
  7. DIGOXIN [Concomitant]
  8. SILDENAFIL [Concomitant]
  9. HYDRALAZINE [Concomitant]
  10. FUROSEMIDE [Concomitant]

REACTIONS (13)
  - Gastrointestinal haemorrhage [Not Recovered/Not Resolved]
  - Anaemia [Recovering/Resolving]
  - Dizziness [Recovering/Resolving]
  - Presyncope [Recovering/Resolving]
  - Haematocrit decreased [Recovering/Resolving]
  - Melaena [Not Recovered/Not Resolved]
  - Packed red blood cell transfusion [Recovering/Resolving]
  - Haemoglobin decreased [Recovering/Resolving]
  - Hypotension [Recovering/Resolving]
  - Fatigue [Recovering/Resolving]
  - Headache [Unknown]
  - Syncope [Recovering/Resolving]
  - Oedema peripheral [Unknown]
